FAERS Safety Report 5364671-8 (Version None)
Quarter: 2007Q2

REPORT INFORMATION
  Report Type: 
  Country: None (occurrence: None)
  Receive Date: 20070621
  Receipt Date: 20070612
  Transmission Date: 20071010
  Serious: Yes (Disabling)
  Sender: FDA-Public Use
  Company Number: PHEH2007US06030

PATIENT
  Sex: Female

DRUGS (5)
  1. ZELNORM [Suspect]
     Indication: CONSTIPATION
     Dosage: 6 MG, TID
     Route: 048
     Dates: start: 20040527, end: 20070212
  2. AMITIZA [Concomitant]
     Indication: CONSTIPATION
     Dosage: 24 MCG, BID
     Route: 048
  3. ASACOL [Concomitant]
     Dosage: 400 MG, BID
     Route: 048
  4. MIRALAX [Concomitant]
     Dosage: 1054 G, BID
     Route: 048
  5. NEXIUM [Concomitant]
     Dosage: 40 MG, QD
     Route: 048

REACTIONS (11)
  - ABDOMINAL DISTENSION [None]
  - ABDOMINAL PAIN UPPER [None]
  - ASTHENIA [None]
  - CHILLS [None]
  - COLITIS [None]
  - CONSTIPATION [None]
  - FATIGUE [None]
  - HYPERHIDROSIS [None]
  - NAUSEA [None]
  - PALPITATIONS [None]
  - VOMITING [None]
